FAERS Safety Report 19986233 (Version 1)
Quarter: 2021Q4

REPORT INFORMATION
  Report Type: Spontaneous
  Country: PK (occurrence: PK)
  Receive Date: 20211022
  Receipt Date: 20211022
  Transmission Date: 20220303
  Serious: Yes (Life-Threatening, Hospitalization, Other)
  Sender: FDA-Public Use
  Company Number: ALC2019PK003223

PATIENT
  Age: 56 Year
  Sex: Female

DRUGS (1)
  1. SIMBRINZA [Suspect]
     Active Substance: BRIMONIDINE TARTRATE\BRINZOLAMIDE
     Indication: Glaucoma
     Dosage: 1 GTT, BID
     Route: 047

REACTIONS (4)
  - Stevens-Johnson syndrome [Recovering/Resolving]
  - Hypersensitivity [Unknown]
  - Swelling of eyelid [Unknown]
  - Eye swelling [Unknown]
